FAERS Safety Report 12694986 (Version 3)
Quarter: 2016Q3

REPORT INFORMATION
  Report Type: Report from Study
  Country: BE (occurrence: BE)
  Receive Date: 20160829
  Receipt Date: 20160915
  Transmission Date: 20161109
  Serious: Yes (Hospitalization)
  Sender: FDA-Public Use
  Company Number: BE-ABBVIE-15P-013-1393356-00

PATIENT
  Sex: Male

DRUGS (18)
  1. SEROQUEL [Concomitant]
     Active Substance: QUETIAPINE FUMARATE
     Indication: PRODUCT USED FOR UNKNOWN INDICATION
     Dates: end: 2015
  2. AZILECT [Concomitant]
     Active Substance: RASAGILINE MESYLATE
     Indication: PRODUCT USED FOR UNKNOWN INDICATION
     Dates: start: 20150319, end: 201506
  3. DUODOPA [Suspect]
     Active Substance: CARBIDOPA\LEVODOPA
     Dosage: AM= 6 ML; CD= 5 ML/H DURING 16 HRS; ED= 3 ML
     Route: 050
     Dates: start: 20160609, end: 20160623
  4. DUODOPA [Suspect]
     Active Substance: CARBIDOPA\LEVODOPA
     Dosage: AM: 6 ML; CD= 4.7 ML/H DURING 16 HRS; ED= 3 ML
     Route: 050
     Dates: start: 20160623, end: 20160628
  5. SEROQUEL [Concomitant]
     Active Substance: QUETIAPINE FUMARATE
     Dates: start: 201506
  6. DUODOPA [Suspect]
     Active Substance: CARBIDOPA\LEVODOPA
     Indication: PARKINSON^S DISEASE
     Route: 050
     Dates: start: 20110711, end: 20110715
  7. DUODOPA [Suspect]
     Active Substance: CARBIDOPA\LEVODOPA
     Dosage: AM DOSE=7ML, CD=3.8ML/H FOR 16HRS, ED=2.5ML
     Route: 050
     Dates: start: 20110715, end: 20110719
  8. DUODOPA [Suspect]
     Active Substance: CARBIDOPA\LEVODOPA
     Dosage: DOSAGE CONTINOUSLY MONITORED AND ADJUSTED
     Route: 050
     Dates: start: 20110719, end: 20150330
  9. DUODOPA [Suspect]
     Active Substance: CARBIDOPA\LEVODOPA
     Dosage: AM DOSE=7ML, CD=4.2ML/H FOR 16HRS AND ED=3ML
     Route: 050
     Dates: start: 20150330, end: 20150630
  10. DUODOPA [Suspect]
     Active Substance: CARBIDOPA\LEVODOPA
     Dosage: AM= 6 ML; CD= 4.5 ML/H DURING 16 HRS; ED= 3 ML
     Route: 050
     Dates: start: 20160628, end: 20160829
  11. DUODOPA [Suspect]
     Active Substance: CARBIDOPA\LEVODOPA
     Dosage: AM=6 ML; CD=4.7 ML/H DURING 16 HRS; ED=3 ML
     Route: 050
     Dates: start: 20160829
  12. ASAFLOW [Concomitant]
     Active Substance: ASPIRIN
     Indication: PRODUCT USED FOR UNKNOWN INDICATION
  13. DUODOPA [Suspect]
     Active Substance: CARBIDOPA\LEVODOPA
     Dosage: AM=7ML;CD=4.5ML/HR DURING 16HRS;ED=3ML
     Route: 050
     Dates: start: 20150630, end: 20150902
  14. DUODOPA [Suspect]
     Active Substance: CARBIDOPA\LEVODOPA
     Dosage: AM=6ML; CD=4.6ML/HR DURING 16HRS; ED=3ML
     Route: 050
     Dates: start: 20150902, end: 20160318
  15. TAMBOCOR [Concomitant]
     Active Substance: FLECAINIDE ACETATE
     Indication: PRODUCT USED FOR UNKNOWN INDICATION
     Dosage: PER DAY: ONCE 1 TABLET AND ONCE 0.5 TABLET
  16. DUODOPA [Suspect]
     Active Substance: CARBIDOPA\LEVODOPA
     Dosage: AM= 6 ML; 4.8 ML/H DURING 16 HRS; ED= 3 ML
     Route: 050
     Dates: start: 20160318, end: 20160609
  17. MOVICOL [Concomitant]
     Active Substance: POLYETHYLENE GLYCOL 3350\POTASSIUM CHLORIDE\SODIUM BICARBONATE\SODIUM CHLORIDE
     Indication: PRODUCT USED FOR UNKNOWN INDICATION
  18. XADAGO [Concomitant]
     Active Substance: SAFINAMIDE
     Indication: PRODUCT USED FOR UNKNOWN INDICATION
     Dates: start: 201606

REACTIONS (7)
  - Confusional state [Unknown]
  - Activities of daily living impaired [Not Recovered/Not Resolved]
  - Freezing phenomenon [Not Recovered/Not Resolved]
  - Dyskinesia [Not Recovered/Not Resolved]
  - Dependent personality disorder [Unknown]
  - Fall [Recovered/Resolved]
  - Device breakage [Unknown]
